FAERS Safety Report 15476503 (Version 2)
Quarter: 2018Q4

REPORT INFORMATION
  Report Type: Spontaneous
  Country: US (occurrence: US)
  Receive Date: 20181009
  Receipt Date: 20181126
  Transmission Date: 20190205
  Serious: No
  Sender: FDA-Public Use
  Company Number: US-PACIRA PHARMACEUTICALS, INC.-2018EXPUS00655

PATIENT

DRUGS (4)
  1. EXPAREL [Suspect]
     Active Substance: BUPIVACAINE
     Indication: PAIN
     Dosage: 20 ML, 1X
  2. LIDOCAINE. [Suspect]
     Active Substance: LIDOCAINE
     Indication: COLPORRHAPHY
     Dosage: 50 ML, 1X
  3. EPINEPHRINE. [Suspect]
     Active Substance: EPINEPHRINE
     Indication: COLPORRHAPHY
     Dosage: 1:200,000
  4. BUPIVACAINE. [Suspect]
     Active Substance: BUPIVACAINE
     Indication: PAIN
     Dosage: 10 ML, 1X

REACTIONS (1)
  - Delirium [Recovered/Resolved]
